FAERS Safety Report 14164601 (Version 1)
Quarter: 2017Q4

REPORT INFORMATION
  Report Type: Spontaneous
  Country: US (occurrence: US)
  Receive Date: 20171107
  Receipt Date: 20171107
  Transmission Date: 20180321
  Serious: No
  Sender: FDA-Public Use
  Company Number: US-PFIZER INC-2017474676

PATIENT
  Age: 74 Year
  Sex: Female

DRUGS (2)
  1. SUCCINYLCHOLINE CHLORIDE. [Suspect]
     Active Substance: SUCCINYLCHOLINE CHLORIDE
     Dosage: UNK
  2. ETODOLAC. [Suspect]
     Active Substance: ETODOLAC
     Dosage: UNK

REACTIONS (1)
  - Drug hypersensitivity [Unknown]
